FAERS Safety Report 8329300-X (Version None)
Quarter: 2012Q2

REPORT INFORMATION
  Report Type: 
  Country: None (occurrence: None)
  Receive Date: 20120502
  Receipt Date: 20120302
  Transmission Date: 20120825
  Serious: No
  Sender: FDA-Public Use
  Company Number: US-ASTRAZENECA-2012SE12941

PATIENT

DRUGS (1)
  1. FASLODEX [Suspect]
     Route: 030
     Dates: start: 20110601

REACTIONS (3)
  - CONDITION AGGRAVATED [None]
  - BEDRIDDEN [None]
  - PAIN [None]
